FAERS Safety Report 5218067-X (Version None)
Quarter: 2007Q1

REPORT INFORMATION
  Report Type: 
  Country: None (occurrence: None)
  Receive Date: 20070124
  Receipt Date: 20060516
  Transmission Date: 20070707
  Serious: Yes (Death, Life-Threatening)
  Sender: FDA-Public Use
  Company Number: FR-BAXTER-601732

PATIENT
  Age: 73 Year
  Sex: Male
  Weight: 70 kg

DRUGS (28)
  1. FEIBA VH IMMUNO [Suspect]
     Indication: HAEMOPHILIA A WITH ANTI FACTOR VIII
     Route: 042
     Dates: start: 20041217, end: 20041221
  2. FEIBA VH IMMUNO [Suspect]
     Indication: HAEMATOMA
     Route: 042
     Dates: start: 20041217, end: 20041221
  3. FEIBA VH IMMUNO [Suspect]
     Route: 042
     Dates: start: 20041217, end: 20041221
  4. FEIBA VH IMMUNO [Suspect]
     Route: 042
     Dates: start: 20041217, end: 20041221
  5. FEIBA VH IMMUNO [Suspect]
     Route: 042
     Dates: start: 20041217, end: 20041217
  6. FEIBA VH IMMUNO [Suspect]
     Route: 042
     Dates: start: 20041217, end: 20041217
  7. FEIBA VH IMMUNO [Suspect]
     Route: 042
     Dates: start: 20041218, end: 20041218
  8. FEIBA VH IMMUNO [Suspect]
     Route: 042
     Dates: start: 20041218, end: 20041218
  9. FEIBA VH IMMUNO [Suspect]
     Route: 042
     Dates: start: 20041219, end: 20041219
  10. FEIBA VH IMMUNO [Suspect]
     Route: 042
     Dates: start: 20041219, end: 20041219
  11. FEIBA VH IMMUNO [Suspect]
     Route: 042
     Dates: start: 20041220, end: 20041220
  12. FEIBA VH IMMUNO [Suspect]
     Route: 042
     Dates: start: 20041220, end: 20041220
  13. FEIBA VH IMMUNO [Suspect]
     Route: 042
     Dates: start: 20041221, end: 20041221
  14. FEIBA VH IMMUNO [Suspect]
     Route: 042
     Dates: start: 20041221, end: 20041221
  15. TRIATEC [Concomitant]
  16. HYPERIUM [Concomitant]
  17. ZOLPIDEM TARTRATE [Concomitant]
  18. ESOMEPRAZOLE MAGNESIUM [Concomitant]
  19. AMLOR [Concomitant]
  20. ACTRAPID HUMAN [Concomitant]
  21. LANTUS [Concomitant]
     Route: 058
  22. METHYLPREDNISOLONE 16MG TAB [Concomitant]
     Dates: start: 20041217
  23. ACTISKENAN [Concomitant]
  24. DURAGESIC-100 [Concomitant]
     Route: 062
  25. POTASSIUM CHLORIDE [Concomitant]
  26. LACTULOSE [Concomitant]
  27. GAVISCON [Concomitant]
  28. FUMAFER [Concomitant]

REACTIONS (4)
  - CHEST PAIN [None]
  - MALIGNANT ASCITES [None]
  - MYOCARDIAL INFARCTION [None]
  - VOMITING [None]
